FAERS Safety Report 4758491-2 (Version None)
Quarter: 2005Q3

REPORT INFORMATION
  Report Type: 
  Country: None (occurrence: None)
  Receive Date: 20050826
  Receipt Date: 20050818
  Transmission Date: 20060218
  Serious: Yes (Other)
  Sender: FDA-Public Use
  Company Number: 2005118273

PATIENT
  Age: 34 Year
  Sex: Male

DRUGS (6)
  1. NEURONTIN [Suspect]
     Indication: EPILEPSY
     Dosage: (600 MG,), ORAL
     Route: 048
  2. DICLOFENAC SODIUM [Suspect]
     Indication: ILL-DEFINED DISORDER
  3. LAMOTRIGINE [Concomitant]
  4. PARACETAMOL (PARACETAMOL) [Concomitant]
  5. DIAZEPAM [Concomitant]
  6. DOMPERIDONE (DOMPERIDONE) [Concomitant]

REACTIONS (2)
  - CONVULSION [None]
  - PHARMACEUTICAL PRODUCT COMPLAINT [None]
